FAERS Safety Report 9570691 (Version 7)
Quarter: 2014Q2

REPORT INFORMATION
  Report Type: Spontaneous
  Country: US (occurrence: US)
  Receive Date: 20131001
  Receipt Date: 20140410
  Transmission Date: 20141212
  Serious: No
  Sender: FDA-Public Use
  Company Number: US-BIOGENIDEC-2013BI092605

PATIENT
  Age: 66 Year
  Sex: Female

DRUGS (16)
  1. TYSABRI [Suspect]
     Indication: MULTIPLE SCLEROSIS
     Route: 042
     Dates: start: 20080331, end: 20130731
  2. ACETAMINOPHEN [Concomitant]
     Route: 048
  3. ASPIRIN [Concomitant]
     Route: 048
  4. ATORVASTATIN [Concomitant]
     Route: 048
  5. CHOLECALCIFEROL [Concomitant]
     Route: 048
  6. CYANOCOBALAMIN [Concomitant]
     Route: 048
  7. DONEPEZIL [Concomitant]
     Route: 048
  8. FUROSEMIDE [Concomitant]
     Route: 048
  9. LAMOTRIGINE [Concomitant]
     Route: 048
  10. LISINOPRIL [Concomitant]
     Route: 048
  11. METFORMIN [Concomitant]
     Route: 048
  12. POTASSIUM CHLORIDE [Concomitant]
     Route: 048
  13. PREGABALIN [Concomitant]
     Route: 048
  14. SPIRONOLACTONE [Concomitant]
     Route: 048
  15. HYDROCHLOROTHIAZIDE [Concomitant]
     Route: 048
  16. VITAMIN E [Concomitant]
     Route: 048

REACTIONS (3)
  - Mental status changes [Unknown]
  - Sleep apnoea syndrome [Unknown]
  - General physical health deterioration [Not Recovered/Not Resolved]
